FAERS Safety Report 17005398 (Version 1)
Quarter: 2019Q4

REPORT INFORMATION
  Report Type: Spontaneous
  Country: US (occurrence: US)
  Receive Date: 20191106
  Receipt Date: 20191106
  Transmission Date: 20200122
  Serious: Yes (Life-Threatening, Hospitalization, Other)
  Sender: FDA-Public Use
  Company Number: None

PATIENT
  Age: 81 Year
  Sex: Female
  Weight: 104.33 kg

DRUGS (5)
  1. XARELTO [Concomitant]
     Active Substance: RIVAROXABAN
  2. METROPOLOL [Concomitant]
     Active Substance: METOPROLOL
  3. IRON DEXTRON COMPLEX (IRON DEXTRAN) [Suspect]
     Active Substance: IRON DEXTRAN
     Indication: ANAEMIA
     Dosage: FREQUENCY:  ONE LARGE DOSE 100
     Route: 042
     Dates: start: 20191106, end: 20191106
  4. SYNTHROID [Concomitant]
     Active Substance: LEVOTHYROXINE SODIUM
  5. TYLENOL [Concomitant]
     Active Substance: ACETAMINOPHEN

REACTIONS (5)
  - Chest pain [None]
  - Renal pain [None]
  - Seizure [None]
  - Muscle twitching [None]
  - Anaphylactic reaction [None]

NARRATIVE: CASE EVENT DATE: 20191106
